FAERS Safety Report 6496074-7 (Version None)
Quarter: 2009Q4

REPORT INFORMATION
  Report Type: 
  Country: None (occurrence: None)
  Receive Date: 20091214
  Receipt Date: 20090924
  Transmission Date: 20100525
  Serious: No
  Sender: FDA-Public Use
  Company Number: US-BRISTOL-MYERS SQUIBB COMPANY-14791040

PATIENT
  Age: 64 Year
  Sex: Female
  Weight: 54 kg

DRUGS (5)
  1. ABILIFY [Suspect]
     Indication: BIPOLAR DISORDER
     Dosage: DOSAGE DECREASED TO 2.5MG
  2. ABILIFY [Suspect]
     Indication: DEPRESSION
     Dosage: DOSAGE DECREASED TO 2.5MG
  3. PREVACID [Concomitant]
  4. CAMPRAL [Concomitant]
  5. HYPERTENSION MEDICATION [Concomitant]
     Indication: HYPERTENSION

REACTIONS (3)
  - FATIGUE [None]
  - HANGOVER [None]
  - NAUSEA [None]
